FAERS Safety Report 13962680 (Version 3)
Quarter: 2025Q3

REPORT INFORMATION
  Report Type: Spontaneous
  Country: US (occurrence: US)
  Receive Date: 20170913
  Receipt Date: 20250816
  Transmission Date: 20251020
  Serious: Yes (Life-Threatening, Hospitalization, Other)
  Sender: AUROBINDO
  Company Number: US-AUROBINDO-AUR-APL-2017-40212

PATIENT
  Age: 49 Day
  Sex: Male

DRUGS (3)
  1. FLECAINIDE [Suspect]
     Active Substance: FLECAINIDE
     Indication: Supraventricular tachycardia
  2. FLECAINIDE [Suspect]
     Active Substance: FLECAINIDE
  3. FLECAINIDE [Suspect]
     Active Substance: FLECAINIDE

REACTIONS (3)
  - Toxicity to various agents [Recovered/Resolved]
  - Conduction disorder [Recovered/Resolved]
  - Electrocardiogram QRS complex prolonged [Recovered/Resolved]
